FAERS Safety Report 10181339 (Version 2)
Quarter: 2014Q4

REPORT INFORMATION
  Report Type: Spontaneous
  Country: US (occurrence: US)
  Receive Date: 20140519
  Receipt Date: 20141006
  Transmission Date: 20150528
  Serious: No
  Sender: FDA-Public Use
  Company Number: US-AMGEN INC.-USASP2014034489

PATIENT
  Age: 82 Year
  Sex: Female

DRUGS (5)
  1. CALCIUM CITRATE WITH VITAMIN D [Concomitant]
     Active Substance: CALCIUM CITRATE\VITAMIN D
  2. FLECAINIDE [Concomitant]
     Active Substance: FLECAINIDE
     Dosage: UNK UNK, BID
     Dates: start: 201201
  3. PROLIA [Suspect]
     Active Substance: DENOSUMAB
     Indication: OSTEOPOROSIS POSTMENOPAUSAL
     Dosage: UNK
     Route: 065
     Dates: start: 20131125
  4. CALCIUM [Concomitant]
     Active Substance: CALCIUM
  5. SYNTHROID [Concomitant]
     Active Substance: LEVOTHYROXINE SODIUM

REACTIONS (11)
  - Facial pain [Recovered/Resolved]
  - Ear swelling [Unknown]
  - Blood cholesterol increased [Unknown]
  - Eczema [Unknown]
  - Hypoaesthesia teeth [Unknown]
  - Gingival recession [Unknown]
  - Vein discolouration [Unknown]
  - Tooth disorder [Unknown]
  - Swelling face [Unknown]
  - Toothache [Unknown]
  - Blood test abnormal [Unknown]
